FAERS Safety Report 14655598 (Version 2)
Quarter: 2019Q2

REPORT INFORMATION
  Report Type: Report from Study
  Country: JP (occurrence: JP)
  Receive Date: 20180319
  Receipt Date: 20190425
  Transmission Date: 20190711
  Serious: Yes (Other)
  Sender: FDA-Public Use
  Company Number: JP-TEVA-802418ROM

PATIENT
  Age: 53 Year
  Sex: Male

DRUGS (9)
  1. GABALON [Concomitant]
     Active Substance: BACLOFEN
     Dosage: ONGOING
     Route: 065
  2. ZAFATEK [Concomitant]
     Active Substance: TRELAGLIPTIN SUCCINATE
     Route: 065
     Dates: start: 20161212
  3. MAGMITT [Concomitant]
     Active Substance: MAGNESIUM OXIDE
     Route: 065
     Dates: start: 20180226
  4. GLATIRAMER ACETATE. [Suspect]
     Active Substance: GLATIRAMER ACETATE
     Indication: RELAPSING-REMITTING MULTIPLE SCLEROSIS
     Dosage: 20 MILLIGRAM/MILLILITERS DAILY; ONGOING
     Route: 058
     Dates: start: 20160530
  5. AMLODIPINE [Concomitant]
     Active Substance: AMLODIPINE BESYLATE
     Dosage: ONGOING
  6. TEPRENONE [Concomitant]
     Active Substance: TEPRENONE
     Dosage: ONGOING
     Route: 065
  7. AMITIZA [Concomitant]
     Active Substance: LUBIPROSTONE
     Dosage: ONGOING
     Dates: start: 20160808
  8. VESICARE [Concomitant]
     Active Substance: SOLIFENACIN SUCCINATE
     Dosage: ONGOING
  9. BEZATOL [Concomitant]
     Active Substance: BEZAFIBRATE
     Dosage: SLOW RELEASE TABLET
     Route: 065
     Dates: start: 20150511

REACTIONS (6)
  - Injection site pain [Recovered/Resolved]
  - Injection site erythema [Recovered/Resolved]
  - Diabetes mellitus [Recovered/Resolved]
  - Injection site induration [Recovered/Resolved]
  - Multiple sclerosis relapse [Recovering/Resolving]
  - Injection site swelling [Recovered/Resolved]

NARRATIVE: CASE EVENT DATE: 20160530
